FAERS Safety Report 4582527-5 (Version None)
Quarter: 2005Q1

REPORT INFORMATION
  Report Type: 
  Country: None (occurrence: None)
  Receive Date: 20050211
  Receipt Date: 20050211
  Transmission Date: 20050727
  Serious: Yes (Other)
  Sender: FDA-Public Use
  Company Number: None

PATIENT
  Age: 44 Year
  Sex: Female

DRUGS (5)
  1. LAMICTAL [Suspect]
     Indication: BIPOLAR DISORDER
     Dosage: PO DAILY
     Route: 048
     Dates: start: 20041229
  2. LAMICTAL [Suspect]
     Indication: BIPOLAR DISORDER
     Dosage: PO DAILY
     Route: 048
     Dates: start: 20050113
  3. EFFEXOR XR [Concomitant]
  4. AMBIEN [Concomitant]
  5. TOPAMAX [Concomitant]

REACTIONS (3)
  - OEDEMA [None]
  - PLEURAL DISORDER [None]
  - WEIGHT INCREASED [None]
